FAERS Safety Report 11898555 (Version 1)
Quarter: 2016Q1

REPORT INFORMATION
  Report Type: Spontaneous
  Country: US (occurrence: None)
  Receive Date: 20160107
  Receipt Date: 20160107
  Transmission Date: 20160526
  Serious: Yes (Other)
  Sender: FDA-Public Use
  Company Number: None

PATIENT
  Age: 40 Year
  Sex: Female
  Weight: 81.65 kg

DRUGS (4)
  1. DIAZAPAM 10 MG GEL [Concomitant]
     Active Substance: DIAZEPAM
  2. ZANAFLEX [Concomitant]
     Active Substance: TIZANIDINE HYDROCHLORIDE
  3. NUROTINE [Concomitant]
  4. CHANTIX [Suspect]
     Active Substance: VARENICLINE TARTRATE
     Indication: SMOKING CESSATION THERAPY
     Route: 048
     Dates: start: 20151113

REACTIONS (5)
  - Skin disorder [None]
  - Blister [None]
  - Dyspnoea [None]
  - Dysphagia [None]
  - Oral mucosal blistering [None]

NARRATIVE: CASE EVENT DATE: 20151122
